FAERS Safety Report 12665670 (Version 3)
Quarter: 2018Q2

REPORT INFORMATION
  Report Type: Spontaneous
  Country: US (occurrence: US)
  Receive Date: 20160818
  Receipt Date: 20180406
  Transmission Date: 20180711
  Serious: Yes (Death, Life-Threatening, Hospitalization)
  Sender: FDA-Public Use
  Company Number: US-VALIDUS PHARMACEUTICALS LLC-US-2016VAL002447

PATIENT

DRUGS (3)
  1. METOLAZONE. [Concomitant]
     Active Substance: METOLAZONE
     Indication: PRODUCT USED FOR UNKNOWN INDICATION
     Dosage: UNK
     Route: 065
     Dates: start: 20130827, end: 20130827
  2. POTASSIUM CHLORIDE. [Concomitant]
     Active Substance: POTASSIUM CHLORIDE
     Indication: PRODUCT USED FOR UNKNOWN INDICATION
     Dosage: UNK
     Route: 065
     Dates: start: 20130823, end: 20130830
  3. LASIX [Suspect]
     Active Substance: FUROSEMIDE
     Indication: DIURETIC THERAPY
     Dosage: 80 MG, BID
     Route: 065
     Dates: start: 20130823, end: 20130830

REACTIONS (9)
  - Septic shock [Fatal]
  - Acute kidney injury [Not Recovered/Not Resolved]
  - Urinary tract infection [Recovered/Resolved]
  - Acute respiratory distress syndrome [Fatal]
  - Wound infection [Recovered/Resolved]
  - Cellulitis [Not Recovered/Not Resolved]
  - Endocarditis [Fatal]
  - Escherichia urinary tract infection [Recovered/Resolved]
  - Dehydration [Recovered/Resolved]

NARRATIVE: CASE EVENT DATE: 20130719
